FAERS Safety Report 7099822-0 (Version None)
Quarter: 2010Q4

REPORT INFORMATION
  Report Type: 
  Country: None (occurrence: None)
  Receive Date: 20101112
  Receipt Date: 20101108
  Transmission Date: 20110411
  Serious: Yes (Hospitalization)
  Sender: FDA-Public Use
  Company Number: US-RB-026221-09

PATIENT
  Sex: Female

DRUGS (3)
  1. SUBUTEX [Suspect]
     Indication: DRUG DEPENDENCE
     Dosage: DOSING DETAILS UNKNOWN
     Route: 060
     Dates: start: 20091203, end: 20091217
  2. SUBUTEX [Suspect]
     Dosage: VARIED DOSES
     Route: 060
     Dates: start: 20100601
  3. SUBOXONE [Suspect]
     Indication: DRUG DEPENDENCE
     Dosage: VARIED DOSES
     Route: 060
     Dates: start: 20100114, end: 20100531

REACTIONS (3)
  - DRUG DEPENDENCE [None]
  - DRUG EXPOSURE DURING PREGNANCY [None]
  - PNEUMONIA [None]
